FAERS Safety Report 12722454 (Version 4)
Quarter: 2022Q2

REPORT INFORMATION
  Report Type: Spontaneous
  Country: BR (occurrence: BR)
  Receive Date: 20160907
  Receipt Date: 20220628
  Transmission Date: 20220721
  Serious: Yes (Other)
  Sender: FDA-Public Use
  Company Number: BR-GLAXOSMITHKLINE-BR2015GSK057172

PATIENT

DRUGS (4)
  1. DUTASTERIDE\TAMSULOSIN [Suspect]
     Active Substance: DUTASTERIDE\TAMSULOSIN
     Indication: Benign prostatic hyperplasia
     Dosage: 1 DF, QD, CAPSULE
     Route: 048
     Dates: start: 20150130
  2. DUTASTERIDE\TAMSULOSIN [Suspect]
     Active Substance: DUTASTERIDE\TAMSULOSIN
     Dosage: UNK
     Route: 048
  3. CRESTOR [Concomitant]
     Active Substance: ROSUVASTATIN CALCIUM
     Indication: Hypercholesterolaemia
     Dosage: 1 DF, QD, TABLET
  4. MONTELUKAST SODIUM [Concomitant]
     Active Substance: MONTELUKAST SODIUM
     Indication: Hypersensitivity
     Dosage: 1 DF, QD,TABLET
     Route: 048

REACTIONS (6)
  - Urinary retention [Unknown]
  - Retrograde ejaculation [Unknown]
  - Ejaculation disorder [Not Recovered/Not Resolved]
  - Pollakiuria [Not Recovered/Not Resolved]
  - Semen volume decreased [Unknown]
  - Blood testosterone increased [Unknown]

NARRATIVE: CASE EVENT DATE: 20150101
